FAERS Safety Report 9651255 (Version 1)
Quarter: 2013Q4

REPORT INFORMATION
  Report Type: Spontaneous
  Country: US (occurrence: US)
  Receive Date: 20131029
  Receipt Date: 20131029
  Transmission Date: 20140711
  Serious: No
  Sender: FDA-Public Use
  Company Number: US-BIOGENIDEC-2013BI071139

PATIENT
  Age: 58 Year
  Sex: Female

DRUGS (8)
  1. TECFIDERA [Suspect]
     Indication: MULTIPLE SCLEROSIS
     Route: 048
     Dates: start: 20130518, end: 20130526
  2. TECFIDERA [Suspect]
     Indication: MULTIPLE SCLEROSIS
     Route: 048
     Dates: end: 201306
  3. CLONAZEPAM [Concomitant]
  4. FUROSEMIDE [Concomitant]
  5. PHENYTOIN [Concomitant]
  6. CARVEDILOL [Concomitant]
  7. LEVETIRACETAM [Concomitant]
  8. BACLOFEN [Concomitant]

REACTIONS (2)
  - Decreased appetite [Recovered/Resolved]
  - Lethargy [Recovered/Resolved]
